FAERS Safety Report 4710371-4 (Version None)
Quarter: 2005Q3

REPORT INFORMATION
  Report Type: 
  Country: None (occurrence: None)
  Receive Date: 20050707
  Receipt Date: 20050616
  Transmission Date: 20060218
  Serious: Yes (Hospitalization)
  Sender: FDA-Public Use
  Company Number: USA0506100673

PATIENT
  Age: 37 Year
  Sex: Female

DRUGS (6)
  1. PROZAC [Suspect]
  2. ZYPREXA [Suspect]
  3. WELLBUTRIN [Concomitant]
  4. ZOLOFT [Concomitant]
  5. VALIUM [Concomitant]
  6. ATIVAN [Concomitant]

REACTIONS (3)
  - AGGRESSION [None]
  - LETHARGY [None]
  - MULTIPLE DRUG OVERDOSE [None]
